FAERS Safety Report 25060028 (Version 1)
Quarter: 2025Q1

REPORT INFORMATION
  Report Type: Report from Study
  Country: CA (occurrence: CA)
  Receive Date: 20250310
  Receipt Date: 20250310
  Transmission Date: 20250408
  Serious: Yes (Death)
  Sender: AMGEN
  Company Number: CA-AMGEN-CANNI2025047395

PATIENT

DRUGS (2)
  1. TARLATAMAB [Suspect]
     Active Substance: TARLATAMAB
     Indication: Small cell lung cancer
     Route: 065
  2. TARLATAMAB [Suspect]
     Active Substance: TARLATAMAB
     Route: 065

REACTIONS (1)
  - Death [Fatal]
